FAERS Safety Report 8557218-6 (Version None)
Quarter: 2012Q3

REPORT INFORMATION
  Report Type: 
  Country: None (occurrence: None)
  Receive Date: 20120801
  Receipt Date: 20120718
  Transmission Date: 20120928
  Serious: Yes (Life-Threatening)
  Sender: FDA-Public Use
  Company Number: DE-ROCHE-1091242

PATIENT
  Sex: Male
  Weight: 71.2 kg

DRUGS (11)
  1. LEVOTHYROXINE SODIUM [Concomitant]
     Dates: start: 20100219
  2. COLECALCIFEROL [Concomitant]
     Dates: start: 20080111
  3. MIRCERA [Suspect]
     Indication: NEPHROGENIC ANAEMIA
     Dosage: DATE OF LAST DOSE PRIOR TO SAE: 09/APR/2012
     Route: 042
     Dates: start: 20111219
  4. OMEPRAZOLE [Concomitant]
     Dates: start: 20070227
  5. CARVEDILOL [Concomitant]
     Dates: start: 20120227
  6. DIGITOXIN TAB [Concomitant]
     Dates: start: 20090804
  7. SEVELAMER [Concomitant]
     Dates: start: 20111210
  8. ALFACALCIDOL [Concomitant]
     Dates: start: 20120113
  9. CANDESARTAN [Concomitant]
     Dates: start: 20120203
  10. TORSEMIDE [Concomitant]
     Dates: start: 20120228
  11. NATRIUMHYDROGENCARBONAT [Concomitant]
     Dates: start: 20080821

REACTIONS (1)
  - FALL [None]
